FAERS Safety Report 8102434-0 (Version None)
Quarter: 2011Q4

REPORT INFORMATION
  Report Type: 
  Country: None (occurrence: None)
  Receive Date: 20111222
  Receipt Date: 20110906
  Transmission Date: 20120403
  Serious: Yes (Hospitalization)
  Sender: FDA-Public Use
  Company Number: UTC-010039

PATIENT
  Age: 39 Year
  Sex: Female
  Weight: 64.54 kg

DRUGS (2)
  1. TYVASO [Suspect]
     Indication: COR PULMONALE CHRONIC
     Dosage: 24 MCG (6 MCG, 4 IN 1 D), INHALATION
     Route: 055
     Dates: start: 20110520
  2. REVATIO [Concomitant]

REACTIONS (1)
  - DYSPNOEA [None]
